FAERS Safety Report 5610536-3 (Version None)
Quarter: 2008Q1

REPORT INFORMATION
  Report Type: 
  Country: None (occurrence: None)
  Receive Date: 20080130
  Receipt Date: 20080130
  Transmission Date: 20080703
  Serious: Yes (Other)
  Sender: FDA-Public Use
  Company Number: None

PATIENT
  Age: 64 Year
  Sex: Male
  Weight: 68.0396 kg

DRUGS (2)
  1. LIPRAM-PM10 [Suspect]
     Indication: PANCREATITIS
     Dosage: UNKNOWN TWICE A DAY ORAL
     Route: 048
  2. NEXIUM [Concomitant]

REACTIONS (2)
  - RASH GENERALISED [None]
  - RASH PRURITIC [None]
